FAERS Safety Report 7888461-7 (Version None)
Quarter: 2011Q4

REPORT INFORMATION
  Report Type: 
  Country: None (occurrence: None)
  Receive Date: 20111103
  Receipt Date: 20111028
  Transmission Date: 20120403
  Serious: Yes (Death, Other)
  Sender: FDA-Public Use
  Company Number: PHHY2011JP64877

PATIENT
  Sex: Female
  Weight: 41 kg

DRUGS (4)
  1. AMLODIPINE BESYLATE/VALSARTAN [Suspect]
     Indication: HYPERTENSION
     Dosage: 1 DF, DAILY
     Route: 048
     Dates: start: 20100604, end: 20110119
  2. ISOSORBIDE DINITRATE [Concomitant]
     Indication: HYPERTENSION
     Dosage: 40 MG, UNK
     Route: 048
     Dates: end: 20110228
  3. HERBESSOR R [Concomitant]
     Indication: HYPERTENSION
     Dosage: 100 MG, UNK
     Route: 048
     Dates: end: 20110228
  4. DOXAZOSIN MESYLATE [Concomitant]
     Indication: HYPERTENSION
     Dosage: 1 MG, DAILY
     Route: 048
     Dates: start: 20080827, end: 20101119

REACTIONS (4)
  - BLOOD UREA INCREASED [None]
  - HYPOTENSION [None]
  - BLOOD CREATININE INCREASED [None]
  - CARDIAC FAILURE [None]
